FAERS Safety Report 9519969 (Version 1)
Quarter: 2013Q1

REPORT INFORMATION
  Report Type: Spontaneous
  Country: US (occurrence: None)
  Receive Date: 20130305
  Receipt Date: 20130305
  Transmission Date: 20140127
  Serious: Yes (Other)
  Sender: FDA-Public Use
  Company Number: 163-21880-11123363

PATIENT
  Age: 88 Year
  Sex: Male

DRUGS (22)
  1. REVLIMID [Suspect]
     Indication: MYELODYSPLASTIC SYNDROME
     Route: 048
     Dates: start: 20111103, end: 20111216
  2. AMMONIUM LACTATE (AMMONIUM LACTATE) [Concomitant]
  3. CALCIUM (CALCIUM) [Concomitant]
  4. CARVEDILOL (CARVEDILOL) (TABLETS) [Concomitant]
  5. CILOSTAZOL (CILOSTAZOL) [Concomitant]
  6. DIPHENOXYLATE-ATROPINE (LOMOTIL) [Concomitant]
  7. ELIDEL (PIMECROLIMUS) [Concomitant]
  8. KETOCONAZOLE (KETOCONAZOLE) [Concomitant]
  9. NEUPOGEN (FILGRASTIM) [Concomitant]
  10. PRANDIN (DEFLAZACORT) [Concomitant]
  11. OMEPRAZOLE (OMEPRAZOLE) [Concomitant]
  12. ALENDRONATE SODIUM (ALENDRONATE SODIUM) (ALENDRONATE SODIUM) [Concomitant]
  13. TAMSULOSIN HCL (TAMSULOSIN HYDROCHLORIDE) [Concomitant]
  14. DORZOL / TIMOL (COSOPT) (EYE DROPS) [Concomitant]
  15. TRAVATAN Z (TRAVOPROST) (EYE DROPS) [Concomitant]
  16. VITAMIN B (VITAMIN B) [Concomitant]
  17. CYCLOBENZAPRINE HCL (CYCLOBENZAPRINE HYDROCHLORIDE) (TABLETS) [Concomitant]
  18. OXYCODONE (OXYCODONE) (TABLETS) [Concomitant]
  19. OCUVITE W/ LUTEIN (PRESERVISION LUTEIN EYE VIT.+MIN.SUP.SOFTG) (EYE DROPS) [Concomitant]
  20. VITAMIN D (ERGOCALCIFEROL) [Concomitant]
  21. GLUCOSAMINE / CONDROITIN (JORIX) [Concomitant]
  22. FISH OIL (FISH OIL) [Concomitant]

REACTIONS (3)
  - Platelet count decreased [None]
  - Haemoglobin decreased [None]
  - White blood cell count decreased [None]
